FAERS Safety Report 5046360-2 (Version None)
Quarter: 2006Q2

REPORT INFORMATION
  Report Type: 
  Country: None (occurrence: None)
  Receive Date: 20060629
  Receipt Date: 20060619
  Transmission Date: 20061013
  Serious: Yes (Death)
  Sender: FDA-Public Use
  Company Number: 2006US001297

PATIENT
  Age: 29 Year
  Sex: Male

DRUGS (1)
  1. PROGRAF [Suspect]
     Indication: PROPHYLAXIS AGAINST TRANSPLANT REJECTION
     Dosage: 6 MG, BID, ORAL
     Route: 048

REACTIONS (3)
  - ASPIRATION [None]
  - HYPOXIA [None]
  - RESPIRATORY ARREST [None]
